FAERS Safety Report 4774235-2 (Version None)
Quarter: 2005Q3

REPORT INFORMATION
  Report Type: 
  Country: None (occurrence: None)
  Receive Date: 20050914
  Receipt Date: 20050727
  Transmission Date: 20060218
  Serious: Yes (Other)
  Sender: FDA-Public Use
  Company Number: 412360

PATIENT
  Sex: Female

DRUGS (4)
  1. BONIVA [Suspect]
  2. HYZAAR [Suspect]
  3. COUMADIN [Concomitant]
  4. DILTIAZEM [Concomitant]

REACTIONS (2)
  - MUSCLE SPASMS [None]
  - STOMACH DISCOMFORT [None]
